FAERS Safety Report 20430546 (Version 1)
Quarter: 2022Q1

REPORT INFORMATION
  Report Type: Report from Study
  Country: FR (occurrence: FR)
  Receive Date: 20220204
  Receipt Date: 20220204
  Transmission Date: 20220423
  Serious: Yes (Hospitalization, Other)
  Sender: FDA-Public Use
  Company Number: FR-SERVIER-S20010125

PATIENT

DRUGS (8)
  1. ONCASPAR [Suspect]
     Active Substance: PEGASPARGASE
     Indication: Acute lymphocytic leukaemia
     Dosage: 2750 IU, DAY 12 AND 26
     Route: 042
     Dates: start: 20190106, end: 20190120
  2. TN USPECIFIED [Concomitant]
     Indication: Acute lymphocytic leukaemia
     Dosage: 1.7 MG, IV, D8, D15, D22, D29
     Route: 042
     Dates: start: 20190102, end: 20190123
  3. TN USPECIFIED [Concomitant]
     Indication: Acute lymphocytic leukaemia
     Dosage: 44 MG, IV, D8, D15, D22, D29
     Route: 042
     Dates: start: 20190102, end: 20190123
  4. TN USPECIFIED [Concomitant]
     Indication: Acute lymphocytic leukaemia
     Dosage: 1090 MG, IV, D9
     Route: 042
     Dates: start: 20190103
  5. TN USPECIFIED [Concomitant]
     Indication: Acute lymphocytic leukaemia
     Dosage: 66 MG, IV, D8 TO D28
     Route: 042
     Dates: start: 20190102, end: 20190122
  6. TN USPECIFIED [Concomitant]
     Indication: Acute lymphocytic leukaemia
     Dosage: 12 MG, IT, D13, D24
     Route: 037
     Dates: start: 20190107, end: 20190118
  7. TN USPECIFIED [Concomitant]
     Indication: Acute lymphocytic leukaemia
     Dosage: 30 MG, IT, D13, D24
     Route: 037
     Dates: start: 20190107, end: 20190118
  8. TN USPECIFIED [Concomitant]
     Indication: Acute lymphocytic leukaemia
     Dosage: 15 MG, IT, D13, D24
     Route: 037
     Dates: start: 20190107, end: 20190118

REACTIONS (2)
  - Bronchopulmonary aspergillosis [Recovered/Resolved]
  - Gamma-glutamyltransferase increased [Recovered/Resolved]

NARRATIVE: CASE EVENT DATE: 20190121
